FAERS Safety Report 4870815-4 (Version None)
Quarter: 2005Q4

REPORT INFORMATION
  Report Type: 
  Country: None (occurrence: None)
  Receive Date: 20051229
  Receipt Date: 20051214
  Transmission Date: 20060501
  Serious: Yes (Hospitalization)
  Sender: FDA-Public Use
  Company Number: 2005-02587

PATIENT
  Age: 63 Year
  Sex: Female
  Weight: 53 kg

DRUGS (18)
  1. VELCADE [Suspect]
     Indication: MULTIPLE MYELOMA
     Dosage: 1.30; 1.00 MG/M2, INTRAVENOUS
     Route: 042
     Dates: start: 20050715, end: 20050719
  2. VELCADE [Suspect]
     Indication: MULTIPLE MYELOMA
     Dosage: 1.30; 1.00 MG/M2, INTRAVENOUS
     Route: 042
     Dates: start: 20050805, end: 20050815
  3. VELCADE [Suspect]
     Indication: MULTIPLE MYELOMA
     Dosage: 1.30; 1.00 MG/M2, INTRAVENOUS
     Route: 042
     Dates: start: 20050826, end: 20050905
  4. VELCADE [Suspect]
     Indication: MULTIPLE MYELOMA
     Dosage: 1.30; 1.00 MG/M2, INTRAVENOUS
     Route: 042
     Dates: start: 20050930, end: 20051011
  5. VELCADE [Suspect]
     Indication: MULTIPLE MYELOMA
     Dosage: 1.30; 1.00 MG/M2, INTRAVENOUS
     Route: 042
     Dates: start: 20051104, end: 20051114
  6. VELCADE [Suspect]
     Indication: MULTIPLE MYELOMA
     Dosage: 1.30; 1.00 MG/M2, INTRAVENOUS
     Route: 042
     Dates: start: 20051202, end: 20051212
  7. FOSAMAX [Concomitant]
  8. LOXONIN (LOXOPROFEN SODIUM) [Concomitant]
  9. DICLOFENAC SODIUM [Concomitant]
  10. PL GRAN. (CAFFEINE, PRACETAMOL, PROMETHAZINE METHYLENE DISALICYLATE, S [Concomitant]
  11. TRANSAMIN (TRANEXAMIC ACID) [Concomitant]
  12. AREDIA [Concomitant]
  13. KETOPROFEN [Concomitant]
  14. METHYL SALICYLATE (METHYL SALICYLATE) [Concomitant]
  15. CAPSAICIN (CAPSAICIN) [Concomitant]
  16. CAMPHOR (CAMPHOR) [Concomitant]
  17. SENNOSIDE (SENNOSIDE A) [Concomitant]
  18. SANCOBA (CYANOCOBALAMIN) [Concomitant]

REACTIONS (24)
  - ALANINE AMINOTRANSFERASE INCREASED [None]
  - ASPARTATE AMINOTRANSFERASE INCREASED [None]
  - BLOOD CHLORIDE DECREASED [None]
  - BLOOD LACTATE DEHYDROGENASE INCREASED [None]
  - BLOOD PH INCREASED [None]
  - BLOOD SODIUM DECREASED [None]
  - BLOOD UREA INCREASED [None]
  - BRONCHITIS [None]
  - BRONCHOPNEUMONIA [None]
  - C-REACTIVE PROTEIN INCREASED [None]
  - COUGH [None]
  - DEHYDRATION [None]
  - DIARRHOEA [None]
  - ENTEROCOLITIS [None]
  - FAECAL INCONTINENCE [None]
  - NASOPHARYNGITIS [None]
  - PCO2 DECREASED [None]
  - PHARYNGEAL ERYTHEMA [None]
  - PLATELET COUNT DECREASED [None]
  - PO2 DECREASED [None]
  - PULMONARY OEDEMA [None]
  - PYREXIA [None]
  - VOMITING [None]
  - WHITE BLOOD CELL COUNT DECREASED [None]
